FAERS Safety Report 4672574-7 (Version None)
Quarter: 2005Q2

REPORT INFORMATION
  Report Type: 
  Country: None (occurrence: None)
  Receive Date: 20050524
  Receipt Date: 20050523
  Transmission Date: 20051028
  Serious: Yes (Hospitalization)
  Sender: FDA-Public Use
  Company Number: US-GLAXOSMITHKLINE-A0559748A

PATIENT
  Age: 23 Year
  Sex: Female

DRUGS (3)
  1. ESKALITH [Suspect]
     Route: 048
  2. LEXAPRO [Concomitant]
  3. DEPAKOTE [Concomitant]

REACTIONS (3)
  - HYPOTHYROIDISM [None]
  - INTENTIONAL MISUSE [None]
  - SUICIDAL IDEATION [None]
